FAERS Safety Report 17149067 (Version 10)
Quarter: 2020Q4

REPORT INFORMATION
  Report Type: Report from Study
  Country: None (occurrence: BE)
  Receive Date: 20191213
  Receipt Date: 20201208
  Transmission Date: 20210113
  Serious: Yes (Other)
  Sender: FDA-Public Use
  Company Number: BE-ABBVIE-19S-013-2742062-00

PATIENT
  Sex: Female
  Weight: 62 kg

DRUGS (24)
  1. DUODOPA [Suspect]
     Active Substance: CARBIDOPA\LEVODOPA
     Dosage: MD= 9.5ML CD= 3.5ML/HR DURING 16HRS ED= 4ML
     Route: 050
     Dates: start: 20190417, end: 20190514
  2. DUODOPA [Suspect]
     Active Substance: CARBIDOPA\LEVODOPA
     Dosage: MD=7.5ML, CD=3ML/HR DURING 16HRS, ED=3.2ML
     Route: 050
     Dates: start: 20201204
  3. STALEVO [Concomitant]
     Active Substance: CARBIDOPA\ENTACAPONE\LEVODOPA
     Indication: PRODUCT USED FOR UNKNOWN INDICATION
     Dosage: RESCUE MEDICATION
  4. DUODOPA [Suspect]
     Active Substance: CARBIDOPA\LEVODOPA
     Indication: PARKINSON^S DISEASE
     Dosage: MD=10ML CD=3ML/HR DURING 16HRS  ED=4ML
     Route: 050
     Dates: start: 20190401, end: 20190405
  5. DUODOPA [Suspect]
     Active Substance: CARBIDOPA\LEVODOPA
     Dosage: MD=9ML?CD=3.3ML/HR DURING 16HRS?ED=4ML
     Route: 050
     Dates: start: 20190514, end: 20190515
  6. DUODOPA [Suspect]
     Active Substance: CARBIDOPA\LEVODOPA
     Dosage: MD=9ML, CD=3.7ML/HR DURING 16HRS, ED=3.5ML
     Route: 050
     Dates: start: 20191016, end: 20191104
  7. DUODOPA [Suspect]
     Active Substance: CARBIDOPA\LEVODOPA
     Dosage: MD=8.5ML, CD=3.3ML/HR DURING 16HRS, ED=3.5 ML
     Route: 050
     Dates: start: 20200220, end: 20200406
  8. DUODOPA [Suspect]
     Active Substance: CARBIDOPA\LEVODOPA
     Dosage: MD=7ML, CD=3.3ML/HR DURING 16HRS, ED=3.5ML
     Route: 050
     Dates: start: 20200406, end: 20200505
  9. DUODOPA [Suspect]
     Active Substance: CARBIDOPA\LEVODOPA
     Dosage: MD=7ML, CD=2.9ML/HR DURING 16HRS, ED=3.5ML
     Route: 050
     Dates: start: 20200520, end: 20200824
  10. DUODOPA [Suspect]
     Active Substance: CARBIDOPA\LEVODOPA
     Dosage: MD=8.5ML, CD=3.3ML/HR DURING 16HRS, ED=3.5ML
     Route: 050
     Dates: start: 20191209, end: 201912
  11. DUODOPA [Suspect]
     Active Substance: CARBIDOPA\LEVODOPA
     Route: 050
     Dates: start: 20191227
  12. MIRAPEXIN [Concomitant]
     Active Substance: PRAMIPEXOLE
     Indication: PARKINSON^S DISEASE
     Route: 048
  13. DUODOPA [Suspect]
     Active Substance: CARBIDOPA\LEVODOPA
     Dosage: MD=9ML, CD=3.4ML/HR DURING 16HRS, ED=3.5ML
     Route: 050
     Dates: start: 20191104, end: 20191118
  14. DUODOPA [Suspect]
     Active Substance: CARBIDOPA\LEVODOPA
     Dosage: MD=10ML CD=3.8ML/HR DURING 16HRS  ED=4ML
     Route: 050
     Dates: start: 20190405, end: 20190415
  15. DUODOPA [Suspect]
     Active Substance: CARBIDOPA\LEVODOPA
     Dosage: MD=9ML CD=3.5ML/HR DURING 16HRS ED=4.5ML
     Route: 050
     Dates: start: 20190610, end: 20191016
  16. DUODOPA [Suspect]
     Active Substance: CARBIDOPA\LEVODOPA
     Dosage: MD=MD=8ML, CD=3ML/HR DURING 16HRS, ED=3ML
     Route: 050
     Dates: start: 20201002, end: 20201204
  17. MIRAPEXIN [Concomitant]
     Active Substance: PRAMIPEXOLE
  18. DUODOPA [Suspect]
     Active Substance: CARBIDOPA\LEVODOPA
     Dosage: MD=9ML, CD=3.1ML/HR DURING 16HRS, ED=3.5ML
     Route: 050
     Dates: start: 20191118, end: 20191209
  19. DUODOPA [Suspect]
     Active Substance: CARBIDOPA\LEVODOPA
     Dosage: MD=8ML, CD=2.9ML/HR DURING 16HRS, ED=3ML
     Route: 050
     Dates: start: 20200824, end: 20201002
  20. DUODOPA [Suspect]
     Active Substance: CARBIDOPA\LEVODOPA
     Dosage: MD= 9.5ML CD= 3.7ML/HR DURING 16HRS ED= 4ML
     Route: 050
     Dates: start: 20190415, end: 20190417
  21. DUODOPA [Suspect]
     Active Substance: CARBIDOPA\LEVODOPA
     Dosage: MD=9ML?CD=3.5ML/HR DURING 16HRS?ED=4ML
     Route: 050
     Dates: start: 20190515, end: 20190610
  22. DUODOPA [Suspect]
     Active Substance: CARBIDOPA\LEVODOPA
     Dosage: MD=9ML, CD=3.3ML/HR DURING 16HRS, ED=3.5ML
     Route: 050
     Dates: start: 201912, end: 201912
  23. DUODOPA [Suspect]
     Active Substance: CARBIDOPA\LEVODOPA
     Dosage: MD=8.5ML, CD=3.3ML/HR DURING 16HRS, ED=4ML
     Route: 050
     Dates: end: 20200220
  24. DUODOPA [Suspect]
     Active Substance: CARBIDOPA\LEVODOPA
     Dosage: MD=8ML, CD=3.1ML/HR DURING 16HRS, ED=3.5ML
     Route: 050
     Dates: start: 20200505, end: 20200520

REACTIONS (18)
  - Mobility decreased [Recovered/Resolved]
  - Muscle rigidity [Not Recovered/Not Resolved]
  - Device alarm issue [Recovered/Resolved]
  - Malaise [Unknown]
  - Dyskinesia [Not Recovered/Not Resolved]
  - Therapeutic product effect incomplete [Not Recovered/Not Resolved]
  - Device kink [Recovered/Resolved]
  - Muscle spasms [Unknown]
  - On and off phenomenon [Not Recovered/Not Resolved]
  - Hypokinesia [Not Recovered/Not Resolved]
  - Nerve compression [Unknown]
  - Abdominal discomfort [Unknown]
  - Stoma site discharge [Recovered/Resolved]
  - Back disorder [Unknown]
  - Stoma site pain [Recovered/Resolved]
  - Pain in extremity [Not Recovered/Not Resolved]
  - Device occlusion [Recovered/Resolved]
  - Stoma site erythema [Recovered/Resolved]

NARRATIVE: CASE EVENT DATE: 2019
